FAERS Safety Report 6715724-0 (Version None)
Quarter: 2010Q2

REPORT INFORMATION
  Report Type: 
  Country: None (occurrence: None)
  Receive Date: 20100507
  Receipt Date: 20100427
  Transmission Date: 20101027
  Serious: Yes (Hospitalization)
  Sender: FDA-Public Use
  Company Number: DE-JNJFOC-20100407470

PATIENT
  Age: 79 Year
  Sex: Female

DRUGS (5)
  1. REMICADE [Suspect]
     Indication: RHEUMATOID ARTHRITIS
     Route: 042
  2. METHOTREXATE [Concomitant]
  3. LEFLUNOMIDE [Concomitant]
  4. LEFLUNOMIDE [Concomitant]
  5. PREDNISOLONE [Concomitant]

REACTIONS (5)
  - ANGINA PECTORIS [None]
  - BREAST CANCER [None]
  - CORONARY ARTERY DISEASE [None]
  - DYSPNOEA [None]
  - PULMONARY FIBROSIS [None]
